FAERS Safety Report 8882034 (Version 1)
Quarter: 2012Q4

REPORT INFORMATION
  Report Type: 
  Country: US (occurrence: US)
  Receive Date: 20121102
  Receipt Date: 20121102
  Transmission Date: 20130627
  Serious: No
  Sender: FDA-Public Use
  Company Number: US-VERTEX PHARMACEUTICAL INC.-2012-023863

PATIENT
  Age: 57 Year
  Sex: Female
  Weight: 54 kg

DRUGS (7)
  1. VX-950 [Suspect]
     Indication: HEPATITIS C
     Dosage: 750 mg, tid
     Route: 048
  2. PEGASYS [Suspect]
     Indication: HEPATITIS C
     Dosage: UNK
  3. RIBAVIRIN [Suspect]
     Indication: HEPATITIS C
     Dosage: 600 mg, qd
  4. RIBAVIRIN [Suspect]
     Dosage: 400 mg, qd
  5. AMBIEN [Concomitant]
     Dosage: 10 mg, UNK
  6. LORTAB                             /00607101/ [Concomitant]
  7. TYLENOL 8 HOUR [Concomitant]
     Dosage: 650 mg, UNK

REACTIONS (1)
  - Anaemia [Unknown]
